FAERS Safety Report 7580826-6 (Version None)
Quarter: 2011Q2

REPORT INFORMATION
  Report Type: 
  Country: None (occurrence: None)
  Receive Date: 20110629
  Receipt Date: 20110624
  Transmission Date: 20111010
  Serious: Yes (Other)
  Sender: FDA-Public Use
  Company Number: TR-PFIZER INC-2011141977

PATIENT
  Sex: Female

DRUGS (1)
  1. TOLTERODINE TARTRATE [Suspect]
     Dosage: 4 MG, UNK

REACTIONS (3)
  - MIGRAINE [None]
  - ACCOMMODATION DISORDER [None]
  - EYE DISORDER [None]
